FAERS Safety Report 10057860 (Version 1)
Quarter: 2014Q1

REPORT INFORMATION
  Report Type: Spontaneous
  Country: US (occurrence: None)
  Receive Date: 20140326
  Receipt Date: 20140326
  Transmission Date: 20141002
  Serious: Yes (Other)
  Sender: FDA-Public Use
  Company Number: US-145530

PATIENT
  Age: 87 Year
  Sex: Male

DRUGS (2)
  1. WINRHO SDF LIQUID [Suspect]
     Indication: IMMUNE THROMBOCYTOPENIC PURPURA
     Dates: start: 20140315, end: 20140315
  2. SOLUMEDROL [Concomitant]

REACTIONS (6)
  - Haemolysis [None]
  - Tremor [None]
  - Back pain [None]
  - Hyperhidrosis [None]
  - Coombs direct test positive [None]
  - Haematocrit decreased [None]
